FAERS Safety Report 10730131 (Version 1)
Quarter: 2015Q1

REPORT INFORMATION
  Report Type: Report from Study
  Country: US (occurrence: US)
  Receive Date: 20150122
  Receipt Date: 20150122
  Transmission Date: 20150721
  Serious: Yes (Other)
  Sender: FDA-Public Use
  Company Number: PHEH2015US001538

PATIENT
  Sex: Male

DRUGS (3)
  1. NIACIN. [Suspect]
     Active Substance: NIACIN
     Indication: PRODUCT USED FOR UNKNOWN INDICATION
     Route: 065
  2. PRAVACHOL [Suspect]
     Active Substance: PRAVASTATIN SODIUM
     Indication: PRODUCT USED FOR UNKNOWN INDICATION
     Route: 065
  3. MYFORTIC [Suspect]
     Active Substance: MYCOPHENOLATE SODIUM
     Indication: PRODUCT USED FOR UNKNOWN INDICATION
     Dosage: 720 MG, BID
     Route: 048
     Dates: start: 2008

REACTIONS (4)
  - Diabetes mellitus [Unknown]
  - Drug-induced liver injury [Unknown]
  - Pancreatitis [Unknown]
  - Back pain [Unknown]

NARRATIVE: CASE EVENT DATE: 2011
